FAERS Safety Report 10136389 (Version 1)
Quarter: 2014Q2

REPORT INFORMATION
  Report Type: Report from Study
  Country: US (occurrence: US)
  Receive Date: 20140429
  Receipt Date: 20140429
  Transmission Date: 20141212
  Serious: Yes (Hospitalization, Other)
  Sender: FDA-Public Use
  Company Number: US-JNJFOC-20140416321

PATIENT
  Age: 69 Year
  Sex: Male

DRUGS (13)
  1. REMICADE [Suspect]
     Indication: RHEUMATOID ARTHRITIS
     Route: 042
     Dates: start: 20130805
  2. REMICADE [Suspect]
     Indication: RHEUMATOID ARTHRITIS
     Route: 042
     Dates: start: 20130916
  3. METHOTREXATE [Concomitant]
     Indication: RHEUMATOID ARTHRITIS
     Dosage: 2.5 MG/8 TABLETS
     Route: 048
     Dates: start: 2012, end: 201309
  4. TYLENOL W/CODEINE [Concomitant]
     Indication: PAIN
     Route: 048
     Dates: start: 2011
  5. SOMA [Concomitant]
     Indication: SLEEP DISORDER THERAPY
     Dosage: TWO AT BED TIME
     Route: 065
     Dates: start: 2011
  6. SOMA [Concomitant]
     Indication: SLEEP DISORDER THERAPY
     Dosage: 1 AT 5 PM
     Route: 065
     Dates: start: 2011
  7. FIORICET [Concomitant]
     Indication: PAIN
     Dosage: 50MG-325MG-??40MG/TABLET/50MG-325MG-??40MG/ONE TABLET THREE TIMES??DAILY/ORAL
     Route: 048
  8. LIPITOR [Concomitant]
     Indication: BLOOD CHOLESTEROL INCREASED
     Route: 048
  9. CYMBALTA [Concomitant]
     Indication: PAIN
     Route: 048
     Dates: start: 2012
  10. CYMBALTA [Concomitant]
     Indication: ELEVATED MOOD
     Route: 048
     Dates: start: 2012
  11. TAMSULOSIN HCL [Concomitant]
     Route: 048
  12. FOLIC ACID [Concomitant]
     Route: 048
     Dates: start: 2012
  13. FUROSEMIDE [Concomitant]
     Route: 048

REACTIONS (19)
  - Transurethral prostatectomy [Unknown]
  - Lower respiratory tract infection bacterial [Not Recovered/Not Resolved]
  - Pneumonia [Unknown]
  - Retinal detachment [Recovered/Resolved]
  - Renal failure [Unknown]
  - Abnormal loss of weight [Not Recovered/Not Resolved]
  - Electrocardiogram abnormal [Unknown]
  - Cardiac failure congestive [Unknown]
  - Meningitis meningococcal [Unknown]
  - Protein S increased [Unknown]
  - Bradycardia [Unknown]
  - Skin infection [Unknown]
  - Urinary tract infection [Unknown]
  - Infection [Not Recovered/Not Resolved]
  - Infection [Not Recovered/Not Resolved]
  - Pulmonary mycosis [Not Recovered/Not Resolved]
  - Dyspnoea [Not Recovered/Not Resolved]
  - Hernia [Unknown]
  - Unevaluable event [Unknown]
